FAERS Safety Report 4650524-7 (Version None)
Quarter: 2005Q2

REPORT INFORMATION
  Report Type: 
  Country: None (occurrence: None)
  Receive Date: 20050428
  Receipt Date: 20050415
  Transmission Date: 20051028
  Serious: Yes (Hospitalization)
  Sender: FDA-Public Use
  Company Number: 2005UW05913

PATIENT
  Age: 62 Year
  Sex: Female

DRUGS (5)
  1. ARIMIDEX [Suspect]
     Indication: BREAST CANCER
  2. ARIMIDEX [Suspect]
     Indication: BREAST CANCER
     Dosage: RESTARTED IN HOSPITAL
  3. CHEMOTHERAPY [Suspect]
  4. HYDROXYZINE [Concomitant]
  5. TYLENOL (CAPLET) [Concomitant]

REACTIONS (6)
  - CONFUSIONAL STATE [None]
  - DRUG INTERACTION [None]
  - DYSPNOEA [None]
  - HYPOXIA [None]
  - RASH [None]
  - STREPTOCOCCAL INFECTION [None]
